FAERS Safety Report 10079832 (Version 1)
Quarter: 2014Q2

REPORT INFORMATION
  Report Type: Report from Study
  Country: US (occurrence: US)
  Receive Date: 20140415
  Receipt Date: 20140415
  Transmission Date: 20141212
  Serious: Yes (Hospitalization, Other)
  Sender: FDA-Public Use
  Company Number: US-ALEXION PHARMACEUTICALS INC.-A200800621

PATIENT
  Sex: 0

DRUGS (2)
  1. SOLIRIS [Suspect]
     Indication: PAROXYSMAL NOCTURNAL HAEMOGLOBINURIA
     Dosage: UNK
     Route: 042
  2. DIGOXIN [Concomitant]

REACTIONS (5)
  - Transfusion [Unknown]
  - Gallbladder operation [Unknown]
  - Physiotherapy [Not Recovered/Not Resolved]
  - Haemoglobinuria [Unknown]
  - Asthenia [Unknown]
